FAERS Safety Report 8839416 (Version 1)
Quarter: 2012Q4

REPORT INFORMATION
  Report Type: Spontaneous
  Country: US (occurrence: None)
  Receive Date: 20121012
  Receipt Date: 20121012
  Transmission Date: 20130627
  Serious: Yes (Hospitalization)
  Sender: FDA-Public Use
  Company Number: None

PATIENT
  Age: 68 Year
  Sex: Female
  Weight: 82 kg

DRUGS (8)
  1. SIMVASTATIN [Suspect]
     Route: 048
  2. LISINOPRIL [Suspect]
     Route: 048
  3. GLYBURIDE [Concomitant]
  4. GABAPENTIN [Concomitant]
  5. ALLOPURINOL [Concomitant]
  6. DILTIAZEM [Concomitant]
  7. FOLIC ACID [Concomitant]
  8. HETZ [Concomitant]

REACTIONS (5)
  - Hyperkalaemia [None]
  - Renal failure acute [None]
  - Hyponatraemia [None]
  - Dehydration [None]
  - Rhabdomyolysis [None]
